FAERS Safety Report 8765675 (Version 4)
Quarter: 2012Q4

REPORT INFORMATION
  Report Type: 
  Country: DE (occurrence: DE)
  Receive Date: 20120904
  Receipt Date: 20121218
  Transmission Date: 20130627
  Serious: Yes (Hospitalization)
  Sender: FDA-Public Use
  Company Number: DE-JNJFOC-20120812960

PATIENT
  Age: 69 Year
  Sex: Male
  Weight: 94 kg

DRUGS (7)
  1. ZYTIGA [Suspect]
     Indication: PROSTATE CANCER METASTATIC
     Route: 048
     Dates: start: 20120712, end: 20120825
  2. ZYTIGA [Suspect]
     Indication: PROSTATE CANCER METASTATIC
     Route: 048
     Dates: start: 20120905
  3. PREDNISONE [Concomitant]
     Route: 048
     Dates: start: 20120709
  4. PREDNISONE [Concomitant]
     Route: 048
     Dates: start: 20120826
  5. LUTEINIZING HORMONE-RELEASING HORMONE [Concomitant]
     Route: 065
     Dates: start: 201007
  6. ZOLEDRONIC ACID [Concomitant]
     Indication: OSTEOPOROSIS PROPHYLAXIS
     Route: 041
     Dates: start: 20120918
  7. ZOLEDRONIC ACID [Concomitant]
     Indication: OSTEOPOROSIS PROPHYLAXIS
     Route: 041
     Dates: start: 201011

REACTIONS (8)
  - Metastases to central nervous system [Unknown]
  - General physical health deterioration [Not Recovered/Not Resolved]
  - Diabetes insipidus [Recovered/Resolved]
  - Pituitary tumour [Unknown]
  - Thrombocytopenia [Unknown]
  - Thirst [Recovering/Resolving]
  - Polyuria [Recovered/Resolved]
  - Pain [Recovering/Resolving]
